FAERS Safety Report 20688685 (Version 1)
Quarter: 2022Q2

REPORT INFORMATION
  Report Type: Spontaneous
  Country: GB (occurrence: GB)
  Receive Date: 20220408
  Receipt Date: 20220408
  Transmission Date: 20220721
  Serious: Yes (Hospitalization, Other)
  Sender: FDA-Public Use
  Company Number: GB-MHRA-TPP32880496C2401535YC1646307744131

PATIENT
  Age: 55 Year
  Sex: Female
  Weight: 103 kg

DRUGS (3)
  1. NITROFURANTOIN [Suspect]
     Active Substance: NITROFURANTOIN
     Indication: Ill-defined disorder
     Dosage: 100 MILLIGRAM
     Route: 065
     Dates: start: 20220303
  2. ESTRADIOL [Concomitant]
     Active Substance: ESTRADIOL
     Indication: Ill-defined disorder
     Dosage: 1 DOSAGE FORM, TWICW WEEKLY
     Route: 065
     Dates: start: 20211213
  3. ALBUTEROL [Concomitant]
     Active Substance: ALBUTEROL
     Indication: Ill-defined disorder
     Dosage: 2 DOSAGE FORM, AS NECESSARY
     Route: 055
     Dates: start: 20210616

REACTIONS (2)
  - Dyspnoea [Recovered/Resolved]
  - Oxygen saturation decreased [Recovered/Resolved]

NARRATIVE: CASE EVENT DATE: 20220303
